FAERS Safety Report 13912608 (Version 15)
Quarter: 2019Q3

REPORT INFORMATION
  Report Type: Spontaneous
  Country: US (occurrence: US)
  Receive Date: 20170828
  Receipt Date: 20190917
  Transmission Date: 20191004
  Serious: Yes (Congenital Anomaly, Other)
  Sender: FDA-Public Use
  Company Number: PHEH2017US027372

PATIENT
  Sex: Female

DRUGS (3)
  1. ZOFRAN [Suspect]
     Active Substance: ONDANSETRON HYDROCHLORIDE
     Indication: FOETAL EXPOSURE DURING PREGNANCY
     Dosage: MOTHERS DOSE: 2 MG, Q8H, PRN
     Route: 064
  2. ONDANSETRON DR REDDY [Suspect]
     Active Substance: ONDANSETRON
     Indication: FOETAL EXPOSURE DURING PREGNANCY
     Dosage: MOTHER DOSE: 1DF, Q4H (AS NEEDED)
     Route: 064
  3. ZOFRAN ODT [Suspect]
     Active Substance: ONDANSETRON HYDROCHLORIDE
     Indication: FOETAL EXPOSURE DURING PREGNANCY
     Dosage: MOTHER DOSE: 08 MG, Q8H
     Route: 064

REACTIONS (50)
  - Tricuspid valve disease [Unknown]
  - Appendicitis [Unknown]
  - Colitis [Not Recovered/Not Resolved]
  - Vitamin D deficiency [Unknown]
  - Gastroenteritis [Recovered/Resolved]
  - Urinary tract infection [Unknown]
  - Chronic gastritis [Unknown]
  - Hypermetropia [Unknown]
  - Gastrointestinal haemorrhage [Unknown]
  - Pyrexia [Unknown]
  - Upper respiratory tract infection [Unknown]
  - Decreased activity [Unknown]
  - Anaemia [Unknown]
  - Pyelocaliectasis [Not Recovered/Not Resolved]
  - Haematochezia [Unknown]
  - Injury [Unknown]
  - Vomiting [Unknown]
  - Cough [Unknown]
  - Decreased appetite [Unknown]
  - Rhinitis allergic [Unknown]
  - Nausea [Unknown]
  - Pneumonia [Unknown]
  - Dizziness [Unknown]
  - Eye irritation [Unknown]
  - Crohn^s disease [Unknown]
  - Overweight [Unknown]
  - Aphthous ulcer [Unknown]
  - Diarrhoea [Unknown]
  - Snoring [Unknown]
  - Lethargy [Unknown]
  - Abdominal pain upper [Unknown]
  - Dysphagia [Unknown]
  - Iron deficiency anaemia [Unknown]
  - Dysuria [Unknown]
  - Dehydration [Unknown]
  - Viral infection [Unknown]
  - Weight gain poor [Unknown]
  - Infection [Unknown]
  - Dyschezia [Unknown]
  - Fatigue [Unknown]
  - Cardiac murmur [Unknown]
  - Uveitis [Unknown]
  - Premature baby [Unknown]
  - Rectal haemorrhage [Unknown]
  - Gastrooesophageal reflux disease [Unknown]
  - Constipation [Unknown]
  - Abdominal distension [Unknown]
  - Foetal exposure during pregnancy [Unknown]
  - Dyspnoea [Unknown]
  - Abdominal pain [Unknown]
